FAERS Safety Report 8778187 (Version 1)
Quarter: 2012Q4

REPORT INFORMATION
  Report Type: 
  Country: DE (occurrence: DE)
  Receive Date: 20120904
  Receipt Date: 20120904
  Transmission Date: 20130627
  Serious: Yes (Hospitalization, Other)
  Sender: FDA-Public Use
  Company Number: DE-ELI_LILLY_AND_COMPANY-DE201209000310

PATIENT
  Sex: Female

DRUGS (6)
  1. FORSTEO [Suspect]
     Indication: OSTEOPOROSIS
     Dosage: UNK, qd
     Route: 058
     Dates: start: 20110504
  2. VITAMIN D NOS [Concomitant]
  3. ASS [Concomitant]
  4. FUROSEMID [Concomitant]
  5. SIMVASTATIN [Concomitant]
  6. ALLOPURINOL [Concomitant]
     Dosage: UNK
     Dates: start: 20120801

REACTIONS (2)
  - Cerebrovascular accident [Not Recovered/Not Resolved]
  - Diabetes mellitus [Not Recovered/Not Resolved]
